FAERS Safety Report 26203622 (Version 1)
Quarter: 2025Q4

REPORT INFORMATION
  Report Type: Spontaneous
  Country: US (occurrence: US)
  Receive Date: 20251226
  Receipt Date: 20251226
  Transmission Date: 20260117
  Serious: Yes (Other)
  Sender: BIOCON
  Company Number: US-BIOCON BIOLOGICS LIMITED-BBL2025006930

PATIENT

DRUGS (5)
  1. KIRSTY [Suspect]
     Active Substance: INSULIN ASPART-XJHZ
     Indication: Product used for unknown indication
     Dosage: UNK
     Route: 065
  2. INSULIN GLARGINE [Suspect]
     Active Substance: INSULIN GLARGINE
     Indication: Product used for unknown indication
     Dosage: UNK, UNK
     Route: 065
  3. INSULIN GLARGINE [Suspect]
     Active Substance: INSULIN GLARGINE
  4. INSULIN GLARGINE [Suspect]
     Active Substance: INSULIN GLARGINE
  5. INSULIN GLARGINE [Suspect]
     Active Substance: INSULIN GLARGINE

REACTIONS (2)
  - Emergency care [Unknown]
  - Medication error [Unknown]
